FAERS Safety Report 6636100-5 (Version None)
Quarter: 2010Q1

REPORT INFORMATION
  Report Type: 
  Country: None (occurrence: None)
  Receive Date: 20100225
  Receipt Date: 20091228
  Transmission Date: 20100710
  Serious: Yes (Hospitalization, Other)
  Sender: FDA-Public Use
  Company Number: US-JNJFOC-20100100777

PATIENT
  Age: 69 Year
  Sex: Male
  Weight: 95.709 kg

DRUGS (5)
  1. IBUPROFEN [Suspect]
     Indication: DRUG USE FOR UNKNOWN INDICATION
  2. STUDY MEDICATION (INVESTIGATIONAL DRUG) SOLUTION [Suspect]
     Indication: OSTEOARTHRITIS
     Dosage: 1 IN 8 WEEK, INTRAVENOUS
     Route: 042
     Dates: start: 20091123
  3. ALDACTAZIDE (ALDACTAZIDE A) [Concomitant]
  4. ZOCOR [Concomitant]
  5. NYQUIL (MEDINITE [Concomitant]

REACTIONS (1)
  - GASTRIC ULCER HAEMORRHAGE [None]
